FAERS Safety Report 18494398 (Version 1)
Quarter: 2020Q4

REPORT INFORMATION
  Report Type: Spontaneous
  Country: DE (occurrence: DE)
  Receive Date: 20201112
  Receipt Date: 20201112
  Transmission Date: 20210114
  Serious: Yes (Hospitalization)
  Sender: FDA-Public Use
  Company Number: DE-TEVA-2020-DE-1847324

PATIENT
  Age: 63 Year
  Sex: Male
  Weight: 75 kg

DRUGS (5)
  1. XIPAMID [Suspect]
     Active Substance: XIPAMIDE
     Dosage: 20 MILLIGRAM DAILY;  0-1-0-0,
     Route: 048
  2. TORASEMID [Suspect]
     Active Substance: TORSEMIDE
     Dosage: 10 MILLIGRAM DAILY; 1-0-0-0,
     Route: 048
  3. THIAMIN (VITAMIN B1) [Concomitant]
     Dosage: 200 MILLIGRAM DAILY; 1-0-0-0,
     Route: 048
  4. SPIRONOLACTON [Suspect]
     Active Substance: SPIRONOLACTONE
     Dosage: 4 DOSAGE FORMS DAILY; 50 MG, 2-0-2-0,
     Route: 048
  5. PANTOPRAZOL [Concomitant]
     Active Substance: PANTOPRAZOLE SODIUM
     Dosage: 40 MILLIGRAM DAILY; 1-0-0-0,
     Route: 048

REACTIONS (2)
  - Confusional state [Unknown]
  - Cognitive disorder [Unknown]
